FAERS Safety Report 8574774-2 (Version None)
Quarter: 2012Q3

REPORT INFORMATION
  Report Type: 
  Country: None (occurrence: None)
  Receive Date: 20120807
  Receipt Date: 20120802
  Transmission Date: 20120928
  Serious: Yes (Other)
  Sender: FDA-Public Use
  Company Number: US-AMGEN-USASP2012025883

PATIENT
  Age: 40 Year
  Sex: Male

DRUGS (2)
  1. ENBREL [Suspect]
     Indication: RHEUMATOID ARTHRITIS
     Dosage: 25 MG, 2 TIMES/WK
     Dates: start: 20120418, end: 20120501
  2. TREXALL [Concomitant]
     Dosage: 3 MG, UNK
     Dates: start: 20120420

REACTIONS (10)
  - INSOMNIA [None]
  - FATIGUE [None]
  - DIPLOPIA [None]
  - IRRITABILITY [None]
  - EYE PAIN [None]
  - DISCOMFORT [None]
  - VISION BLURRED [None]
  - HYPERTENSION [None]
  - ASTHENIA [None]
  - RHEUMATOID ARTHRITIS [None]
